FAERS Safety Report 5199706-9 (Version None)
Quarter: 2007Q1

REPORT INFORMATION
  Report Type: 
  Country: None (occurrence: None)
  Receive Date: 20070105
  Receipt Date: 20061227
  Transmission Date: 20070707
  Serious: Yes (Other)
  Sender: FDA-Public Use
  Company Number: DE-JNJFOC-20061200810

PATIENT
  Sex: Male

DRUGS (5)
  1. RISPERDAL [Suspect]
     Indication: AGGRESSION
     Route: 048
  2. RISPERDAL [Suspect]
     Indication: RESTLESSNESS
     Route: 048
  3. CIBACEN [Concomitant]
     Indication: HYPERTENSION
  4. FURORESE [Concomitant]
  5. FURORESE [Concomitant]
     Indication: FLUID RETENTION

REACTIONS (1)
  - RENAL CYST [None]
